FAERS Safety Report 10760948 (Version 1)
Quarter: 2015Q1

REPORT INFORMATION
  Report Type: Spontaneous
  Country: CZ (occurrence: None)
  Receive Date: 20150202
  Receipt Date: 20150202
  Transmission Date: 20150721
  Serious: Yes (Hospitalization)
  Sender: FDA-Public Use
  Company Number: 2014FE03147

PATIENT
  Age: 34 Year
  Sex: Female

DRUGS (1)
  1. UNKNOWN (DESMOPRESSIN) UNKNOWN [Suspect]
     Active Substance: DESMOPRESSIN
     Indication: POLYURIA

REACTIONS (5)
  - Fluid retention [None]
  - Blood osmolarity decreased [None]
  - Off label use [None]
  - Hyponatraemia [None]
  - Inappropriate antidiuretic hormone secretion [None]
